FAERS Safety Report 26100687 (Version 1)
Quarter: 2025Q4

REPORT INFORMATION
  Report Type: Spontaneous
  Country: US (occurrence: US)
  Receive Date: 20251128
  Receipt Date: 20251128
  Transmission Date: 20260118
  Serious: No
  Sender: STALLERGENES
  Company Number: US-STALCOR-2025-AER-02726

PATIENT
  Age: 5 Year
  Sex: Male

DRUGS (5)
  1. PALFORZIA [Suspect]
     Active Substance: PEANUT
     Indication: Food allergy
     Dosage: REACTIVE DOSE AT MAINTENANCE LEVEL, 300MG DISPENSED 30-JUL-2025
     Route: 048
  2. BENADRYL DYE FREE [Concomitant]
     Indication: Product used for unknown indication
  3. EPIPEN 2-PAK (YELLOW) [Concomitant]
     Indication: Product used for unknown indication
  4. ZYRTEC OTC [Concomitant]
     Indication: Product used for unknown indication
  5. AUVI-Q AUTO [Concomitant]
     Indication: Product used for unknown indication

REACTIONS (4)
  - Respiratory tract congestion [Not Recovered/Not Resolved]
  - Pruritus [Not Recovered/Not Resolved]
  - Vomiting [Not Recovered/Not Resolved]
  - Off label use [Recovered/Resolved]

NARRATIVE: CASE EVENT DATE: 20250913
